FAERS Safety Report 5602742-9 (Version None)
Quarter: 2008Q1

REPORT INFORMATION
  Report Type: 
  Country: None (occurrence: None)
  Receive Date: 20080125
  Receipt Date: 20070530
  Transmission Date: 20080703
  Serious: Yes (Other)
  Sender: FDA-Public Use
  Company Number: A0653520A

PATIENT

DRUGS (1)
  1. HYCAMTIN [Suspect]
     Dosage: 4MG CYCLIC
     Route: 042

REACTIONS (1)
  - ANAEMIA [None]
